FAERS Safety Report 5842725-7 (Version None)
Quarter: 2008Q3

REPORT INFORMATION
  Report Type: 
  Country: None (occurrence: None)
  Receive Date: 20080808
  Receipt Date: 20080730
  Transmission Date: 20090109
  Serious: Yes (Hospitalization)
  Sender: FDA-Public Use
  Company Number: 233757J08USA

PATIENT
  Age: 45 Year
  Sex: Female
  Weight: 90.7194 kg

DRUGS (2)
  1. REBIF [Suspect]
     Indication: MULTIPLE SCLEROSIS
     Dosage: 44 MCG, 3 IN 1 WEEKS, SUBCUTANEOUS, SUBCUTANEOUS
     Route: 058
     Dates: start: 20071204, end: 20080301
  2. REBIF [Suspect]
     Indication: MULTIPLE SCLEROSIS
     Dosage: 44 MCG, 3 IN 1 WEEKS, SUBCUTANEOUS, SUBCUTANEOUS
     Route: 058
     Dates: start: 20080101

REACTIONS (1)
  - CEREBROVASCULAR ACCIDENT [None]
